FAERS Safety Report 7169795-0 (Version None)
Quarter: 2010Q4

REPORT INFORMATION
  Report Type: 
  Country: None (occurrence: None)
  Receive Date: 20101217
  Receipt Date: 20101015
  Transmission Date: 20110411
  Serious: No
  Sender: FDA-Public Use
  Company Number: A0887101A

PATIENT
  Age: 48 Year
  Sex: Female

DRUGS (6)
  1. SORIATANE [Suspect]
     Indication: PSORIASIS
     Dosage: 25MG PER DAY
     Route: 048
     Dates: start: 20100815
  2. METFORMIN [Concomitant]
  3. SIMCOR [Concomitant]
  4. ASPIRIN [Concomitant]
  5. SYNTHROID [Concomitant]
  6. PHENTERMINE [Concomitant]

REACTIONS (3)
  - ALOPECIA [None]
  - DRY SKIN [None]
  - LIP DRY [None]
